FAERS Safety Report 17898607 (Version 3)
Quarter: 2020Q3

REPORT INFORMATION
  Report Type: Report from Study
  Country: CN (occurrence: CN)
  Receive Date: 20200615
  Receipt Date: 20200917
  Transmission Date: 20201103
  Serious: Yes (Life-Threatening, Hospitalization)
  Sender: FDA-Public Use
  Company Number: NVSC2020CN162917

PATIENT
  Age: 51 Year
  Sex: Female
  Weight: 51.2 kg

DRUGS (9)
  1. TNO155 [Suspect]
     Active Substance: TNO-155 MONOSUCCINATE HEMIHYDRATE
     Indication: NON-SMALL CELL LUNG CANCER
     Dosage: 60 MG, QD
     Route: 048
     Dates: start: 20200527, end: 20200608
  2. RIBOCICLIB. [Suspect]
     Active Substance: RIBOCICLIB
     Indication: NON-SMALL CELL LUNG CANCER
     Dosage: 200 MG, QD
     Route: 048
     Dates: start: 20200527, end: 20200608
  3. CELECOXIB. [Concomitant]
     Active Substance: CELECOXIB
     Indication: AXILLARY PAIN
     Dosage: 200 MG, QD
     Route: 048
     Dates: start: 20200614, end: 20200617
  4. CODEINE PHOSPHATE [Concomitant]
     Active Substance: CODEINE PHOSPHATE
     Indication: COUGH
     Dosage: UNK
     Route: 065
     Dates: start: 20200527
  5. CARBAZOCHROME SODIUM SULFONATE [Concomitant]
     Active Substance: CARBAZOCHROME SODIUM SULFONATE
     Indication: HAEMORRHOIDS
     Dosage: UNK
     Route: 065
     Dates: start: 20200617, end: 20200619
  6. LACTULOSE. [Concomitant]
     Active Substance: LACTULOSE
     Indication: CONSTIPATION
     Dosage: UNK
     Route: 048
     Dates: start: 20200621, end: 20200622
  7. MAGNESIUM SULFATE. [Concomitant]
     Active Substance: MAGNESIUM SULFATE
     Indication: HYPOMAGNESAEMIA
     Dosage: UNK
     Route: 065
     Dates: start: 20200609, end: 20200609
  8. SIMETHICONE (DIMETHICONE) [Concomitant]
     Active Substance: DIMETHICONE
     Indication: ABDOMINAL DISTENSION
     Dosage: 40 MG/ML
     Route: 065
     Dates: start: 20200609, end: 20200616
  9. ESTAZOLAM. [Concomitant]
     Active Substance: ESTAZOLAM
     Indication: INSOMNIA
     Dosage: UNK
     Route: 065
     Dates: start: 20200622, end: 20200622

REACTIONS (6)
  - Myelosuppression [Recovered/Resolved]
  - Neutrophil count decreased [Recovered/Resolved]
  - Platelet count decreased [Recovering/Resolving]
  - Diarrhoea [Recovered/Resolved]
  - White blood cell count decreased [Recovering/Resolving]
  - Hypokalaemia [Recovering/Resolving]

NARRATIVE: CASE EVENT DATE: 20200608
